FAERS Safety Report 8839216 (Version 1)
Quarter: 2012Q4

REPORT INFORMATION
  Report Type: Spontaneous
  Country: US (occurrence: None)
  Receive Date: 20121012
  Receipt Date: 20121012
  Transmission Date: 20130627
  Serious: No
  Sender: FDA-Public Use
  Company Number: None

PATIENT
  Sex: Male

DRUGS (3)
  1. VELCADE [Suspect]
  2. MELPHALAN [Suspect]
  3. PREDNISONE [Concomitant]

REACTIONS (2)
  - Rash [None]
  - Skin exfoliation [None]
